FAERS Safety Report 20356689 (Version 3)
Quarter: 2022Q4

REPORT INFORMATION
  Report Type: Report from Study
  Country: CN (occurrence: CN)
  Receive Date: 20220120
  Receipt Date: 20221103
  Transmission Date: 20230112
  Serious: Yes (Hospitalization)
  Sender: FDA-Public Use
  Company Number: CN-NOVARTISPH-NVSC2022CN003251

PATIENT
  Age: 59 Year
  Sex: Female
  Weight: 52 kg

DRUGS (15)
  1. TYKERB [Suspect]
     Active Substance: LAPATINIB DITOSYLATE
     Indication: HER2 positive breast cancer
     Dosage: UNK MG, QD (1250 MG AND 250 MG)
     Route: 048
     Dates: start: 20210923, end: 20211013
  2. TYKERB [Suspect]
     Active Substance: LAPATINIB DITOSYLATE
     Dosage: UNK, QD (1250 MG AND 250 MG)
     Route: 048
     Dates: start: 20211014, end: 20211104
  3. TYKERB [Suspect]
     Active Substance: LAPATINIB DITOSYLATE
     Dosage: UNK, QD (1250 MG AND 250 MG)
     Route: 048
     Dates: start: 20211105, end: 20211125
  4. TYKERB [Suspect]
     Active Substance: LAPATINIB DITOSYLATE
     Dosage: UNK, QD (1250 MG AND 250 MG)
     Route: 048
     Dates: start: 20211126, end: 20211216
  5. TYKERB [Suspect]
     Active Substance: LAPATINIB DITOSYLATE
     Dosage: UNK, QD (1250 MG AND 250 MG)
     Route: 048
     Dates: start: 20211217, end: 20220105
  6. CAPECITABINE [Suspect]
     Active Substance: CAPECITABINE
     Indication: Breast cancer metastatic
     Dosage: UNK, BID (450MG AND 150 MG)
     Route: 048
     Dates: start: 20210923, end: 20211006
  7. CAPECITABINE [Suspect]
     Active Substance: CAPECITABINE
     Dosage: UNK, BID (450MG AND 150 MG)
     Route: 048
     Dates: start: 20211014, end: 20211027
  8. CAPECITABINE [Suspect]
     Active Substance: CAPECITABINE
     Dosage: UNK, BID (450MG AND 150 MG)
     Route: 048
     Dates: start: 20211105, end: 20211118
  9. CAPECITABINE [Suspect]
     Active Substance: CAPECITABINE
     Dosage: UNK, BID (450MG AND 150 MG)
     Route: 048
     Dates: start: 20211126, end: 20211209
  10. CAPECITABINE [Suspect]
     Active Substance: CAPECITABINE
     Dosage: UNK, BID (450MG AND 150 MG)
     Route: 048
     Dates: start: 20211217, end: 20211230
  11. CAPECITABINE [Suspect]
     Active Substance: CAPECITABINE
     Dosage: UNK, BID (1000MG AND 500MG)
     Route: 048
     Dates: start: 20210923, end: 20211006
  12. CAPECITABINE [Suspect]
     Active Substance: CAPECITABINE
     Dosage: UNK, BID (1000MG AND 500MG)
     Route: 048
     Dates: start: 20211014, end: 20211027
  13. CAPECITABINE [Suspect]
     Active Substance: CAPECITABINE
     Dosage: UNK, BID (1000MG AND 500MG)
     Route: 048
     Dates: start: 20211105, end: 20211118
  14. CAPECITABINE [Suspect]
     Active Substance: CAPECITABINE
     Dosage: UNK, BID (1000MG AND 500MG)
     Route: 048
     Dates: start: 20211126, end: 20211209
  15. CAPECITABINE [Suspect]
     Active Substance: CAPECITABINE
     Dosage: UNK, BID (1000MG AND 500MG)
     Route: 048
     Dates: start: 20211217, end: 20211230

REACTIONS (4)
  - Decreased appetite [Recovered/Resolved]
  - Nausea [Recovered/Resolved]
  - Vomiting [Recovered/Resolved]
  - Blood bilirubin increased [Unknown]

NARRATIVE: CASE EVENT DATE: 20210929
